FAERS Safety Report 9379601 (Version 2)
Quarter: 2013Q3

REPORT INFORMATION
  Report Type: Spontaneous
  Country: DK (occurrence: DK)
  Receive Date: 20130702
  Receipt Date: 20130722
  Transmission Date: 20140515
  Serious: Yes (Hospitalization)
  Sender: FDA-Public Use
  Company Number: PHHY2013DK066932

PATIENT
  Age: 57 Year
  Sex: Female
  Weight: 65 kg

DRUGS (3)
  1. GILENYA [Suspect]
     Indication: MULTIPLE SCLEROSIS
     Dosage: 0.5 MG, QD
     Route: 048
     Dates: start: 20130416
  2. CALCIUM [Concomitant]
     Indication: MULTIPLE SCLEROSIS
     Dates: start: 200901
  3. VIT D [Concomitant]
     Indication: MULTIPLE SCLEROSIS
     Dates: start: 200901

REACTIONS (6)
  - Motor dysfunction [Recovered/Resolved]
  - Confusional state [Recovered/Resolved]
  - Sensory disturbance [Recovered/Resolved]
  - Vomiting [Recovered/Resolved]
  - Pyrexia [Recovered/Resolved]
  - Headache [Recovered/Resolved]
